FAERS Safety Report 5190441-X (Version None)
Quarter: 2006Q4

REPORT INFORMATION
  Report Type: 
  Country: None (occurrence: None)
  Receive Date: 20061222
  Receipt Date: 20061214
  Transmission Date: 20070319
  Serious: Yes (Hospitalization)
  Sender: FDA-Public Use
  Company Number: DK-ELI_LILLY_AND_COMPANY-DK200612002708

PATIENT
  Age: 50 Year
  Sex: Female

DRUGS (2)
  1. DULOXETINE HYDROCHLORIDE [Suspect]
     Dosage: 30 MG, DAILY (1/D)
     Route: 048
     Dates: start: 20061201, end: 20061214
  2. TEMGESIC [Concomitant]
     Dosage: UNK, UNK
     Dates: start: 20061201

REACTIONS (2)
  - CEREBRAL THROMBOSIS [None]
  - HEMIPLEGIA [None]
